FAERS Safety Report 18808677 (Version 1)
Quarter: 2021Q1

REPORT INFORMATION
  Report Type: Spontaneous
  Country: DE (occurrence: DE)
  Receive Date: 20210129
  Receipt Date: 20210129
  Transmission Date: 20210419
  Serious: Yes (Hospitalization, Other)
  Sender: FDA-Public Use
  Company Number: DE-ANIPHARMA-2021-DE-000013

PATIENT
  Age: 84 Year
  Sex: Female
  Weight: 85 kg

DRUGS (4)
  1. ATORVASTATIN [Concomitant]
     Active Substance: ATORVASTATIN
     Route: 065
  2. TORASEMIDE [Concomitant]
     Active Substance: TORSEMIDE
     Dosage: 10 MG DAILY / DOSE TEXT: INCREASED
     Route: 065
  3. CANDESARTAN. [Suspect]
     Active Substance: CANDESARTAN
     Indication: PRODUCT USED FOR UNKNOWN INDICATION
     Dosage: 8 MG UNK
     Route: 048
  4. BISOPROLOL [Concomitant]
     Active Substance: BISOPROLOL
     Route: 065

REACTIONS (8)
  - Fluid retention [Unknown]
  - Hyponatraemia [Unknown]
  - Cardiac failure [Unknown]
  - Oedema peripheral [Recovering/Resolving]
  - Hypotension [Unknown]
  - Blood creatinine increased [Unknown]
  - Generalised oedema [Unknown]
  - Skin turgor decreased [Unknown]
